FAERS Safety Report 17643331 (Version 1)
Quarter: 2020Q2

REPORT INFORMATION
  Report Type: Spontaneous
  Country: US (occurrence: US)
  Receive Date: 20200408
  Receipt Date: 20200408
  Transmission Date: 20200713
  Serious: No
  Sender: FDA-Public Use
  Company Number: US-ALLERGAN-2007447US

PATIENT
  Age: 36 Year
  Sex: Female

DRUGS (3)
  1. LISINOPRIL. [Concomitant]
     Active Substance: LISINOPRIL
     Indication: HYPERTENSION
  2. LILETTA [Suspect]
     Active Substance: LEVONORGESTREL
     Indication: CONTRACEPTION
     Dosage: 52 MG, SINGLE
     Route: 015
     Dates: start: 20161216, end: 20200211
  3. MULTIVITAMINS [Concomitant]
     Active Substance: VITAMINS

REACTIONS (4)
  - Complication of device removal [Unknown]
  - Menorrhagia [Unknown]
  - Device expulsion [Recovered/Resolved]
  - Device breakage [Unknown]

NARRATIVE: CASE EVENT DATE: 20200211
